FAERS Safety Report 6898990-0 (Version None)
Quarter: 2010Q3

REPORT INFORMATION
  Report Type: 
  Country: None (occurrence: None)
  Receive Date: 20100802
  Receipt Date: 20071219
  Transmission Date: 20110219
  Serious: No
  Sender: FDA-Public Use
  Company Number: US-PFIZER INC-2007107518

PATIENT
  Sex: Female
  Weight: 51.71 kg

DRUGS (4)
  1. LYRICA [Suspect]
     Indication: COMPLEX REGIONAL PAIN SYNDROME
     Dates: start: 20060101
  2. LYRICA [Suspect]
     Indication: NEURALGIA
  3. TRAMADOL HYDROCHLORIDE [Concomitant]
  4. CYMBALTA [Concomitant]

REACTIONS (1)
  - WEIGHT INCREASED [None]
